FAERS Safety Report 19137277 (Version 1)
Quarter: 2021Q2

REPORT INFORMATION
  Report Type: Spontaneous
  Country: DE (occurrence: DE)
  Receive Date: 20210414
  Receipt Date: 20210414
  Transmission Date: 20210717
  Serious: Yes (Hospitalization)
  Sender: FDA-Public Use
  Company Number: DE-TEVA-2021-DE-1899350

PATIENT
  Age: 77 Year
  Sex: Female

DRUGS (14)
  1. METOPROLOL. [Suspect]
     Active Substance: METOPROLOL
     Dosage: 190 MILLIGRAM DAILY; 1?0?0?1, SUSTAINED?RELEASE TABLETS:UNIT DOSE:95MILLIGRAM
  2. AMLODIPIN [Concomitant]
     Active Substance: AMLODIPINE BESYLATE
     Dosage: 10 MILLIGRAM DAILY; 1?0?1?0
  3. METAMIZOL [Concomitant]
     Active Substance: METAMIZOLE SODIUM
     Dosage: 1000 MILLIGRAM DAILY;  1?0?1?0
  4. DABIGATRAN [Concomitant]
     Active Substance: DABIGATRAN
     Dosage: 300 MILLIGRAM DAILY; 1?0?1?0
  5. INSULIN ASPART [Concomitant]
     Active Substance: INSULIN ASPART
     Dosage: ACCORDING TO THE SCHEME, INJECTION / INFUSION SOLUTION
     Route: 058
  6. PREDNISOLON [Suspect]
     Active Substance: PREDNISOLONE
     Dosage: 5 MILLIGRAM DAILY;  1?0?0?0
  7. EZETIMIB [Concomitant]
     Active Substance: EZETIMIBE
     Dosage: 10 MILLIGRAM DAILY; 0?0?1?0
  8. TRELEGY ELLIPTA 92MIKROGRAMM/55MIKROGRAMM/22MIKROGRAMM [Concomitant]
  9. OMEGA?3?SAURENETHYLESTER 90 HEUMANN 1000MG [Concomitant]
     Dosage: 2 DOSAGE FORMS DAILY; 0?0?0?2:UNIT DOSE:1000MILLIGRAM
  10. CLOPIDOGREL [Concomitant]
     Active Substance: CLOPIDOGREL BISULFATE
     Dosage: 75 MILLIGRAM DAILY; 1?0?0?0
  11. TORASEMID [Concomitant]
     Active Substance: TORSEMIDE
     Dosage: 10 MG, 3?2?0?0
  12. INSULIN DETEMIR [Concomitant]
     Active Substance: INSULIN DETEMIR
     Dosage: 32 IU (INTERNATIONAL UNIT) DAILY; 0?0?0?1
     Route: 058
  13. PANTOPRAZOL [Concomitant]
     Active Substance: PANTOPRAZOLE SODIUM
     Dosage: 40 MILLIGRAM DAILY; 1?0?0?0
  14. KALINOR?RETARD P 600MG [Concomitant]
     Dosage: 1200 MILLIGRAM DAILY; 1?1?0?0

REACTIONS (5)
  - Anxiety [Unknown]
  - Cardiac failure [Unknown]
  - Panic attack [Unknown]
  - Tremor [Unknown]
  - Hyperglycaemia [Unknown]
